FAERS Safety Report 5276420-2 (Version None)
Quarter: 2007Q1

REPORT INFORMATION
  Report Type: 
  Country: None (occurrence: None)
  Receive Date: 20061213
  Receipt Date: 20030916
  Transmission Date: 20070707
  Serious: Yes (Hospitalization)
  Sender: FDA-Public Use
  Company Number: 2003UW11815

PATIENT
  Age: 41 Year
  Sex: Male

DRUGS (5)
  1. SEROQUEL [Suspect]
     Indication: BIPOLAR DISORDER
     Dosage: SEE IMAGE
     Dates: start: 20020101
  2. SEROQUEL [Suspect]
     Indication: BIPOLAR I DISORDER
     Dosage: SEE IMAGE
     Dates: start: 20020101
  3. ABILIFY [Concomitant]
  4. TRILEPTAL [Concomitant]
  5. WELLBUTRIN [Concomitant]

REACTIONS (2)
  - AMNESIA [None]
  - CONVULSION [None]
